FAERS Safety Report 6299614-6 (Version None)
Quarter: 2009Q3

REPORT INFORMATION
  Report Type: 
  Country: None (occurrence: None)
  Receive Date: 20090806
  Receipt Date: 20090730
  Transmission Date: 20100115
  Serious: Yes (Hospitalization)
  Sender: FDA-Public Use
  Company Number: US-ELI_LILLY_AND_COMPANY-US200907007166

PATIENT
  Sex: Female

DRUGS (12)
  1. BYETTA [Suspect]
     Dosage: 10 U, 2/D
     Route: 058
     Dates: end: 20080812
  2. LISINOPRIL [Concomitant]
     Dosage: 10 MG, DAILY (1/D)
  3. METOPROLOL SUCCINATE [Concomitant]
     Dosage: 25 MG, 2/D
  4. NEXIUM [Concomitant]
     Dosage: 40 MG, DAILY (1/D)
  5. SIMVASTATIN [Concomitant]
     Dosage: 40 MG, EACH EVENING
  6. NITROGLYCERIN [Concomitant]
     Dosage: 1 MG, EVERY 6 HRS
     Route: 061
  7. ZOLPIDEM [Concomitant]
     Indication: INSOMNIA
     Dosage: 5 MG, 6/W
  8. TYLENOL (CAPLET) [Concomitant]
     Indication: PAIN
     Dosage: 650 MG, AS NEEDED
  9. METFORMIN [Concomitant]
     Dosage: 850 MG, 2/D
     Dates: end: 20080812
  10. METFORMIN [Concomitant]
     Dosage: 1000 MG, 2/D
     Dates: start: 20080812, end: 20080812
  11. METFORMIN [Concomitant]
     Dosage: 500 MG, 2/D
     Route: 048
     Dates: start: 20080814
  12. COUMADIN [Concomitant]
     Dosage: UNK, DAILY (1/D)

REACTIONS (3)
  - HYPOTHYROIDISM [None]
  - PANCREATITIS ACUTE [None]
  - THYROIDECTOMY [None]
